FAERS Safety Report 5498497-1 (Version None)
Quarter: 2007Q4

REPORT INFORMATION
  Report Type: 
  Country: None (occurrence: None)
  Receive Date: 20071025
  Receipt Date: 20071025
  Transmission Date: 20080405
  Serious: Yes (Death, Hospitalization)
  Sender: FDA-Public Use
  Company Number: None

PATIENT
  Sex: Male
  Weight: 79.6 kg

DRUGS (1)
  1. GMCSF [Suspect]
     Indication: PROSTATE CANCER
     Dosage: 500MG DAYS 1-14 SC
     Route: 058
     Dates: start: 20061127, end: 20070918

REACTIONS (1)
  - ADRENAL INSUFFICIENCY [None]
